FAERS Safety Report 16336856 (Version 1)
Quarter: 2019Q2

REPORT INFORMATION
  Report Type: Spontaneous
  Country: DE (occurrence: DE)
  Receive Date: 20190521
  Receipt Date: 20190521
  Transmission Date: 20190711
  Serious: Yes (Hospitalization, Other)
  Sender: FDA-Public Use
  Company Number: DE-SA-2019SA134371

PATIENT
  Sex: Female

DRUGS (1)
  1. LEMTRADA [Suspect]
     Active Substance: ALEMTUZUMAB
     Dosage: UNK
     Route: 041
     Dates: start: 20170329, end: 20170404

REACTIONS (12)
  - Paraesthesia [Unknown]
  - Gastrointestinal infection [Recovering/Resolving]
  - Varicella virus test positive [Unknown]
  - White blood cell count abnormal [Unknown]
  - Neutrophil percentage abnormal [Unknown]
  - Temperature intolerance [Recovering/Resolving]
  - Uhthoff^s phenomenon [Unknown]
  - Lymphocyte percentage abnormal [Unknown]
  - Gait disturbance [Unknown]
  - Disturbance in attention [Unknown]
  - Visual impairment [Recovering/Resolving]
  - Multiple sclerosis relapse [Unknown]

NARRATIVE: CASE EVENT DATE: 201703
